FAERS Safety Report 22260873 (Version 4)
Quarter: 2023Q2

REPORT INFORMATION
  Report Type: Report from Study
  Country: BG (occurrence: BG)
  Receive Date: 20230427
  Receipt Date: 20230530
  Transmission Date: 20230722
  Serious: Yes (Other)
  Sender: FDA-Public Use
  Company Number: BG-APIL-2312132US

PATIENT
  Sex: Female
  Weight: 70 kg

DRUGS (1)
  1. BIMATOPROST [Suspect]
     Active Substance: BIMATOPROST
     Indication: Open angle glaucoma
     Dosage: 10 ?G, SINGLE
     Route: 031
     Dates: start: 20220824, end: 20220824

REACTIONS (1)
  - Keratopathy [Recovering/Resolving]

NARRATIVE: CASE EVENT DATE: 20230417
